FAERS Safety Report 20730619 (Version 2)
Quarter: 2022Q2

REPORT INFORMATION
  Report Type: Spontaneous
  Country: JP (occurrence: JP)
  Receive Date: 20220420
  Receipt Date: 20220425
  Transmission Date: 20220721
  Serious: Yes (Other)
  Sender: FDA-Public Use
  Company Number: JP-MYLANLABS-2022M1028075

PATIENT
  Age: 60 Year
  Sex: Male

DRUGS (6)
  1. CARBOPLATIN [Suspect]
     Active Substance: CARBOPLATIN
     Indication: Laryngeal squamous cell carcinoma
     Dosage: AS FOURTH LINE TREATMENT
     Route: 065
  2. FLUOROURACIL [Suspect]
     Active Substance: FLUOROURACIL
     Indication: Laryngeal squamous cell carcinoma
     Dosage: AS FIRST LINE TREATMENT
     Route: 065
  3. CISPLATIN [Suspect]
     Active Substance: CISPLATIN
     Indication: Laryngeal squamous cell carcinoma
     Dosage: AS FIRST LINE TREATMENT
     Route: 065
  4. PACLITAXEL [Suspect]
     Active Substance: PACLITAXEL
     Indication: Laryngeal squamous cell carcinoma
     Dosage: AS SECOND LINE AND FOURTH LINE TREATMENT
     Route: 065
  5. CETUXIMAB [Suspect]
     Active Substance: CETUXIMAB
     Indication: Laryngeal squamous cell carcinoma
     Dosage: AS FIRST LINE, SECOND AND FOURTH LINE TREATMENT
     Route: 065
  6. NIVOLUMAB [Concomitant]
     Active Substance: NIVOLUMAB
     Indication: Laryngeal squamous cell carcinoma
     Dosage: 3 MILLIGRAM/KILOGRAM, BIWEEKLY, AS 3RD-LINE TREATMENT
     Route: 065

REACTIONS (1)
  - Drug ineffective [Unknown]
